FAERS Safety Report 14235846 (Version 1)
Quarter: 2017Q4

REPORT INFORMATION
  Report Type: Spontaneous
  Country: PE (occurrence: PE)
  Receive Date: 20171129
  Receipt Date: 20171129
  Transmission Date: 20180321
  Serious: Yes (Death, Hospitalization, Other)
  Sender: FDA-Public Use
  Company Number: PE-PFIZER INC-2017499311

PATIENT
  Sex: Male

DRUGS (1)
  1. INLYTA [Suspect]
     Active Substance: AXITINIB
     Indication: RENAL CANCER
     Dosage: 5 MG, 1 TABLET DAILY
     Route: 048
     Dates: start: 201710, end: 20171117

REACTIONS (2)
  - Sepsis [Fatal]
  - Intestinal perforation [Unknown]
